FAERS Safety Report 10041307 (Version 1)
Quarter: 2014Q1

REPORT INFORMATION
  Report Type: Spontaneous
  Country: US (occurrence: None)
  Receive Date: 20140326
  Receipt Date: 20140326
  Transmission Date: 20141002
  Serious: Yes (Hospitalization)
  Sender: FDA-Public Use
  Company Number: None

PATIENT
  Sex: 0

DRUGS (1)
  1. NIACIN [Suspect]
     Indication: FLUSHING
     Route: 048
     Dates: start: 20130814, end: 20140303

REACTIONS (3)
  - Convulsion [None]
  - Rhabdomyolysis [None]
  - Renal failure acute [None]
